FAERS Safety Report 12569222 (Version 8)
Quarter: 2020Q2

REPORT INFORMATION
  Report Type: Report from Study
  Country: CO (occurrence: CO)
  Receive Date: 20160719
  Receipt Date: 20200427
  Transmission Date: 20200713
  Serious: Yes (Hospitalization)
  Sender: FDA-Public Use
  Company Number: PHHY2016CO096699

PATIENT
  Age: 73 Year
  Sex: Male
  Weight: 80 kg

DRUGS (3)
  1. COSENTYX [Suspect]
     Active Substance: SECUKINUMAB
     Indication: PSORIASIS
     Dosage: 300 MG, QMO
     Route: 058
     Dates: start: 20160616
  2. COSENTYX [Suspect]
     Active Substance: SECUKINUMAB
     Dosage: 300 MG, QMO
     Route: 058
  3. INSULIN [Concomitant]
     Active Substance: INSULIN NOS
     Indication: PRODUCT USED FOR UNKNOWN INDICATION
     Route: 065

REACTIONS (15)
  - Urinary tract infection [Unknown]
  - Pneumonia [Unknown]
  - Oedema [Unknown]
  - Musculoskeletal pain [Unknown]
  - Cerebral ischaemia [Unknown]
  - Joint range of motion decreased [Unknown]
  - Pruritus [Recovering/Resolving]
  - Dandruff [Unknown]
  - Rash [Recovering/Resolving]
  - Loss of consciousness [Unknown]
  - Gait disturbance [Unknown]
  - Oedema peripheral [Unknown]
  - Pyrexia [Unknown]
  - Burning sensation [Recovering/Resolving]
  - Psoriasis [Not Recovered/Not Resolved]

NARRATIVE: CASE EVENT DATE: 20161205
